FAERS Safety Report 5317954-1 (Version None)
Quarter: 2007Q2

REPORT INFORMATION
  Report Type: 
  Country: None (occurrence: None)
  Receive Date: 20070507
  Receipt Date: 20070426
  Transmission Date: 20071010
  Serious: Yes (Other)
  Sender: FDA-Public Use
  Company Number: PHEH2007US05604

PATIENT
  Age: 56 Year
  Sex: Female

DRUGS (6)
  1. ZELNORM [Suspect]
     Indication: COLITIS
     Dosage: 6 MG, UNK
     Dates: start: 20060401, end: 20070401
  2. TOPROL-XL [Concomitant]
  3. NORVASC [Concomitant]
  4. BENICAR [Concomitant]
  5. HYDROCHLOROTHIAZIDE [Concomitant]
  6. ADVAIR DISKUS 100/50 [Concomitant]

REACTIONS (3)
  - CARDIAC PACEMAKER INSERTION [None]
  - LOSS OF CONSCIOUSNESS [None]
  - URINARY INCONTINENCE [None]
